FAERS Safety Report 14229738 (Version 1)
Quarter: 2017Q4

REPORT INFORMATION
  Report Type: Spontaneous
  Country: US (occurrence: None)
  Receive Date: 20171127
  Receipt Date: 20171127
  Transmission Date: 20180321
  Serious: No
  Sender: FDA-Public Use
  Company Number: None

PATIENT
  Age: 65 Year
  Sex: Female

DRUGS (3)
  1. TOUJEO [Concomitant]
     Active Substance: INSULIN GLARGINE
  2. ZEPATIER [Suspect]
     Active Substance: ELBASVIR\GRAZOPREVIR
  3. HUMALOG [Concomitant]
     Active Substance: INSULIN LISPRO

REACTIONS (8)
  - Insomnia [None]
  - Fall [None]
  - Headache [None]
  - Orthostatic hypotension [None]
  - Depression [None]
  - Concussion [None]
  - Blood glucose decreased [None]
  - Alopecia [None]

NARRATIVE: CASE EVENT DATE: 20171123
